FAERS Safety Report 6814693-2 (Version None)
Quarter: 2010Q2

REPORT INFORMATION
  Report Type: 
  Country: None (occurrence: None)
  Receive Date: 20100629
  Receipt Date: 20100614
  Transmission Date: 20101027
  Serious: Yes (Other)
  Sender: FDA-Public Use
  Company Number: IPC201006-000173

PATIENT
  Age: 49 Year
  Sex: Female

DRUGS (3)
  1. METFORMIN HCL [Suspect]
     Indication: DIABETES MELLITUS
     Dates: start: 20090828
  2. SIMVASTATIN [Suspect]
     Indication: HYPERLIPIDAEMIA
     Dates: start: 20091126
  3. CYCLOPROGYNOVA [Concomitant]

REACTIONS (2)
  - HYPERLIPIDAEMIA [None]
  - PEMPHIGUS [None]
